FAERS Safety Report 6741184-X (Version None)
Quarter: 2010Q2

REPORT INFORMATION
  Report Type: 
  Country: None (occurrence: None)
  Receive Date: 20100526
  Receipt Date: 20100518
  Transmission Date: 20101027
  Serious: Yes (Death)
  Sender: FDA-Public Use
  Company Number: GB-TYCO HEALTHCARE/MALLINCKRODT-T201001118

PATIENT
  Age: 81 Year
  Sex: Male

DRUGS (11)
  1. TECHNESCAN [Suspect]
     Indication: BONE SCAN
     Dosage: UNK
     Route: 042
     Dates: start: 20100427, end: 20100427
  2. ULTRA-TECHNEKOW FM [Suspect]
     Indication: BONE SCAN
     Dosage: 620 MBQ, UNK
     Route: 042
     Dates: start: 20100427, end: 20100427
  3. DIAMORPHINE [Concomitant]
  4. OXYTETRACYCLINE [Concomitant]
  5. ADIZEM-XL [Concomitant]
     Dosage: 120 MG, UNK
  6. ASPIRIN [Concomitant]
     Dosage: 75 MG, UNK
     Route: 048
  7. CO-DYDRAMOL [Concomitant]
     Indication: BONE PAIN
     Dosage: 1 DF 4/DAY
     Route: 048
     Dates: start: 20100422
  8. LEVOBUNOLOL HCL [Concomitant]
     Route: 047
  9. MOVICOL                            /01749801/ [Concomitant]
     Dosage: 1 DF 3/DAY
  10. ORAMORPH SR [Concomitant]
     Indication: BONE PAIN
     Dosage: 10 MG 2/DAY
     Route: 048
     Dates: start: 20100423
  11. SIMVASTATIN [Concomitant]
     Dosage: 40 MG, UNK
     Route: 048

REACTIONS (1)
  - ANAPHYLACTIC REACTION [None]
